FAERS Safety Report 21968655 (Version 2)
Quarter: 2023Q2

REPORT INFORMATION
  Report Type: Spontaneous
  Country: US (occurrence: US)
  Receive Date: 20230208
  Receipt Date: 20230609
  Transmission Date: 20230721
  Serious: Yes (Hospitalization, Other)
  Sender: FDA-Public Use
  Company Number: US-Accord-299570

PATIENT
  Age: 66 Year
  Sex: Male
  Weight: 85.3 kg

DRUGS (9)
  1. OXALIPLATIN [Suspect]
     Active Substance: OXALIPLATIN
     Indication: Diffuse large B-cell lymphoma stage IV
     Dosage: 1Q2W
     Route: 042
     Dates: start: 20221115, end: 20230110
  2. GEMCITABINE [Suspect]
     Active Substance: GEMCITABINE
     Indication: Diffuse large B-cell lymphoma stage IV
     Dosage: 1Q2W
     Route: 042
     Dates: start: 20221115, end: 20221115
  3. EPCORITAMAB [Suspect]
     Active Substance: EPCORITAMAB
     Indication: Diffuse large B-cell lymphoma stage IV
     Dosage: PRIMING DOSE; SINGLE
     Route: 058
     Dates: start: 20221115, end: 20221115
  4. GEMCITABINE [Suspect]
     Active Substance: GEMCITABINE
     Indication: Diffuse large B-cell lymphoma stage IV
     Dosage: 1Q2W
     Route: 042
     Dates: start: 20221129, end: 20230110
  5. EPCORITAMAB [Suspect]
     Active Substance: EPCORITAMAB
     Indication: Diffuse large B-cell lymphoma stage IV
     Dosage: INTERMEDIATE DOSE; SINGLE
     Route: 058
     Dates: start: 20221122, end: 20221122
  6. EPCORITAMAB [Suspect]
     Active Substance: EPCORITAMAB
     Indication: Diffuse large B-cell lymphoma stage IV
     Dosage: FULL DOSE; WEEKLY
     Route: 058
     Dates: start: 20221129, end: 20230117
  7. GEMCITABINE [Suspect]
     Active Substance: GEMCITABINE
     Indication: Diffuse large B-cell lymphoma stage IV
     Dosage: 1Q2W
     Route: 042
     Dates: start: 20230207
  8. OXALIPLATIN [Suspect]
     Active Substance: OXALIPLATIN
     Indication: Diffuse large B-cell lymphoma stage IV
     Dosage: 1Q2W
     Route: 042
     Dates: start: 20230207
  9. EPCORITAMAB [Suspect]
     Active Substance: EPCORITAMAB
     Indication: Diffuse large B-cell lymphoma stage IV
     Route: 058
     Dates: start: 20230131

REACTIONS (1)
  - Cellulitis [Recovered/Resolved]

NARRATIVE: CASE EVENT DATE: 20230124
